FAERS Safety Report 7822840-9 (Version None)
Quarter: 2011Q4

REPORT INFORMATION
  Report Type: 
  Country: None (occurrence: None)
  Receive Date: 20111018
  Receipt Date: 20110511
  Transmission Date: 20120403
  Serious: No
  Sender: FDA-Public Use
  Company Number: US-ASTRAZENECA-2011SE28021

PATIENT
  Age: 54 Year
  Sex: Male

DRUGS (3)
  1. ALBUTEROL [Concomitant]
  2. PREVACID [Concomitant]
  3. SYMBICORT [Suspect]
     Indication: CHRONIC OBSTRUCTIVE PULMONARY DISEASE
     Dosage: 160/4.5, TWO PUFFS TWICE A DAY
     Route: 055

REACTIONS (1)
  - ACNE [None]
